FAERS Safety Report 4970521-1 (Version None)
Quarter: 2006Q2

REPORT INFORMATION
  Report Type: 
  Country: None (occurrence: None)
  Receive Date: 20060411
  Receipt Date: 20060411
  Transmission Date: 20061013
  Serious: No
  Sender: FDA-Public Use
  Company Number: None

PATIENT
  Age: 48 Year
  Sex: Male
  Weight: 86.1834 kg

DRUGS (1)
  1. PRED-G [Suspect]
     Indication: OTORRHOEA
     Dosage: OTIC
     Route: 047
     Dates: start: 20020508, end: 20020610

REACTIONS (4)
  - BALANCE DISORDER [None]
  - OSCILLOPSIA [None]
  - OTORRHOEA [None]
  - VESTIBULAR DISORDER [None]
